FAERS Safety Report 17603596 (Version 2)
Quarter: 2020Q2

REPORT INFORMATION
  Report Type: Spontaneous
  Country: US (occurrence: US)
  Receive Date: 20200331
  Receipt Date: 20200515
  Transmission Date: 20200713
  Serious: No
  Sender: FDA-Public Use
  Company Number: US-ASTRAZENECA-2020SE36553

PATIENT
  Age: 27992 Day
  Sex: Female
  Weight: 80.7 kg

DRUGS (1)
  1. BEVESPI AEROSPHERE [Suspect]
     Active Substance: FORMOTEROL FUMARATE\GLYCOPYRROLATE
     Indication: BRONCHITIS CHRONIC
     Dosage: 9MCG/4.8MCG-2 PUFFS, TWO TIMES A DAY
     Route: 055
     Dates: start: 20200302

REACTIONS (4)
  - Intentional device misuse [Unknown]
  - Device ineffective [Unknown]
  - Device issue [Unknown]
  - Dyspnoea [Unknown]

NARRATIVE: CASE EVENT DATE: 20200302
